FAERS Safety Report 8381471-5 (Version None)
Quarter: 2012Q2

REPORT INFORMATION
  Report Type: 
  Country: None (occurrence: None)
  Receive Date: 20120523
  Receipt Date: 20120514
  Transmission Date: 20120825
  Serious: Yes (Other)
  Sender: FDA-Public Use
  Company Number: US-BAXTER-2012BAX004783

PATIENT
  Sex: Female
  Weight: 108.96 kg

DRUGS (1)
  1. GAMMAGARD LIQUID [Suspect]
     Indication: IMMUNODEFICIENCY
     Route: 042
     Dates: start: 20120423, end: 20120423

REACTIONS (3)
  - HEADACHE [None]
  - MENINGITIS [None]
  - PYREXIA [None]
